FAERS Safety Report 10065373 (Version 2)
Quarter: 2014Q2

REPORT INFORMATION
  Report Type: Spontaneous
  Country: TR (occurrence: TR)
  Receive Date: 20140408
  Receipt Date: 20140508
  Transmission Date: 20141212
  Serious: Yes (Other)
  Sender: FDA-Public Use
  Company Number: TR-VERTEX PHARMACEUTICALS INC-2014-001827

PATIENT
  Sex: 0

DRUGS (4)
  1. INCIVO [Suspect]
     Indication: CHRONIC HEPATITIS C
     Route: 048
  2. INCIVO [Suspect]
     Route: 048
  3. RIBAVIRIN [Suspect]
     Indication: CHRONIC HEPATITIS C
  4. PEGINTERFERON ALFA [Suspect]
     Indication: CHRONIC HEPATITIS C

REACTIONS (13)
  - Pneumonia [Unknown]
  - Condition aggravated [Unknown]
  - Syncope [Unknown]
  - Anaemia [Unknown]
  - Treatment noncompliance [Unknown]
  - Drug intolerance [Unknown]
  - Asthenia [Unknown]
  - Fatigue [Unknown]
  - Nausea [Unknown]
  - Vomiting [Unknown]
  - Pruritus [Recovered/Resolved]
  - Anal pruritus [Recovered/Resolved]
  - Anorectal discomfort [Recovered/Resolved]
